FAERS Safety Report 10427274 (Version 1)
Quarter: 2014Q3

REPORT INFORMATION
  Report Type: Spontaneous
  Country: US (occurrence: US)
  Receive Date: 20140903
  Receipt Date: 20140903
  Transmission Date: 20150326
  Serious: No
  Sender: FDA-Public Use
  Company Number: US-BANPHARM-20142776

PATIENT
  Age: 16 Year
  Sex: Male
  Weight: 61.24 kg

DRUGS (1)
  1. ZYRTEC [Suspect]
     Active Substance: CETIRIZINE HYDROCHLORIDE
     Indication: SEASONAL ALLERGY
     Dosage: 1 DF, QD; 1 DF, TID;
     Route: 048

REACTIONS (2)
  - Drug ineffective [Unknown]
  - Incorrect drug administration rate [Unknown]
